FAERS Safety Report 9970055 (Version 1)
Quarter: 2014Q1

REPORT INFORMATION
  Report Type: Spontaneous
  Country: DE (occurrence: DE)
  Receive Date: 20140306
  Receipt Date: 20140306
  Transmission Date: 20141002
  Serious: Yes (Congenital Anomaly)
  Sender: FDA-Public Use
  Company Number: DE-TEVA-464640GER

PATIENT
  Age: 1 Day
  Sex: Male
  Weight: 2.78 kg

DRUGS (8)
  1. CITALOPRAM [Suspect]
     Route: 064
  2. TREVILOR [Suspect]
     Route: 064
  3. METOBETA 100 RETARD [Concomitant]
     Route: 064
  4. L-THYROXIN [Concomitant]
     Route: 064
  5. FRAGMIN 7500 [Concomitant]
     Route: 064
  6. ASS 100 [Concomitant]
     Route: 064
  7. FOLIO [Concomitant]
     Route: 064
  8. INSUMAN BASAL [Concomitant]
     Route: 064

REACTIONS (2)
  - Haemangioma [Unknown]
  - Hydronephrosis [Not Recovered/Not Resolved]
